FAERS Safety Report 5083557-X (Version None)
Quarter: 2006Q3

REPORT INFORMATION
  Report Type: 
  Country: None (occurrence: None)
  Receive Date: 20060720
  Receipt Date: 20060428
  Transmission Date: 20061208
  Serious: Yes (Hospitalization)
  Sender: FDA-Public Use
  Company Number: 2006058776

PATIENT
  Age: 56 Year
  Sex: Female
  Weight: 69.8539 kg

DRUGS (2)
  1. CELEBREX [Suspect]
     Indication: ARTHRITIS
     Dosage: 200 MG (200 MG, 1 IN 1 D)
     Dates: start: 20020213
  2. BEXTRA [Suspect]
     Indication: ARTHRITIS
     Dosage: 20 MG (20 MG, 1 IN 1 D)
     Dates: start: 20040101, end: 20040101

REACTIONS (5)
  - CHEST PAIN [None]
  - CORONARY ARTERY DISEASE [None]
  - DYSPEPSIA [None]
  - EMBOLISM [None]
  - HYPERTENSION [None]
